FAERS Safety Report 25191815 (Version 1)
Quarter: 2025Q2

REPORT INFORMATION
  Report Type: Spontaneous
  Country: GB (occurrence: GB)
  Receive Date: 20250414
  Receipt Date: 20250414
  Transmission Date: 20250717
  Serious: Yes (Other)
  Sender: MYLAN
  Company Number: GB-MYLANLABS-2025M1026329

PATIENT
  Sex: Male

DRUGS (18)
  1. CLOZARIL [Suspect]
     Active Substance: CLOZAPINE
     Indication: Product used for unknown indication
  2. CLOZARIL [Suspect]
     Active Substance: CLOZAPINE
     Dosage: 250 MILLIGRAM, PM (NOCTE)
  3. CLOZARIL [Suspect]
     Active Substance: CLOZAPINE
     Dosage: 200 MILLIGRAM, PM (NOCTE)
     Dates: start: 2025
  4. OLANZAPINE [Concomitant]
     Active Substance: OLANZAPINE
     Dosage: 7.5 MILLIGRAM, PM (NOCTE)
  5. FLUPENTIXOL [Concomitant]
     Active Substance: FLUPENTIXOL
     Dosage: 2 MILLIGRAM, BID (BD)
  6. ZOLPIDEM [Concomitant]
     Active Substance: ZOLPIDEM TARTRATE
     Dosage: 10 MILLIGRAM, PM (NOCTE)
  7. PIRENZEPINE [Concomitant]
     Active Substance: PIRENZEPINE
     Dosage: 25 MILLIGRAM, PM (NOCTE)
  8. PROPRANOLOL [Concomitant]
     Active Substance: PROPRANOLOL HYDROCHLORIDE
     Dosage: 10 MILLIGRAM, TID (TDS)
  9. METFORMIN [Concomitant]
     Active Substance: METFORMIN HYDROCHLORIDE
     Dosage: 500 MILLIGRAM, BID (BD)
  10. DOMPERIDONE [Concomitant]
     Active Substance: DOMPERIDONE
     Dosage: 10 MILLIGRAM, BID (BD)
  11. OMEPRAZOLE [Concomitant]
     Active Substance: OMEPRAZOLE
     Dosage: 40 MILLIGRAM, QD (OD)
  12. SIMVASTATIN [Concomitant]
     Active Substance: SIMVASTATIN
     Dosage: 40 MILLIGRAM, PM (NOCTE)
  13. POLYETHYLENE GLYCOL 3350\POTASSIUM CHLORIDE\SODIUM BICARBONATE\SODIUM [Concomitant]
     Active Substance: POLYETHYLENE GLYCOL 3350\POTASSIUM CHLORIDE\SODIUM BICARBONATE\SODIUM CHLORIDE
     Dosage: UNK, BID (SACHETS, BD)
  14. CANDESARTAN [Concomitant]
     Active Substance: CANDESARTAN
     Dosage: 4 MILLIGRAM, QD (OD)
  15. FERROUS FUMARATE [Concomitant]
     Active Substance: FERROUS FUMARATE
     Dosage: 210 MILLIGRAM, BID (BD)
  16. FOLIC ACID [Concomitant]
     Active Substance: FOLIC ACID
     Dosage: 5 MILLIGRAM, QD (OD)
  17. SYMBICORT [Concomitant]
     Active Substance: BUDESONIDE\FORMOTEROL FUMARATE DIHYDRATE
  18. ALBUTEROL [Concomitant]
     Active Substance: ALBUTEROL

REACTIONS (10)
  - Schizoaffective disorder [Unknown]
  - Diabetes mellitus [Unknown]
  - Asthma [Unknown]
  - Iron deficiency anaemia [Unknown]
  - Antipsychotic drug level increased [Unknown]
  - Lung cyst [Unknown]
  - Hiatus hernia [Unknown]
  - Essential hypertension [Unknown]
  - Fatigue [Unknown]
  - Constipation [Unknown]

NARRATIVE: CASE EVENT DATE: 20250111
